FAERS Safety Report 24674829 (Version 4)
Quarter: 2025Q1

REPORT INFORMATION
  Report Type: Report from Study
  Country: CA (occurrence: CA)
  Receive Date: 20241128
  Receipt Date: 20250213
  Transmission Date: 20250408
  Serious: Yes (Hospitalization, Other)
  Sender: TAKEDA
  Company Number: CA-TAKEDA-2024TUS118628

PATIENT
  Age: 64 Year
  Sex: Male

DRUGS (10)
  1. VEDOLIZUMAB [Suspect]
     Active Substance: VEDOLIZUMAB
     Indication: Colitis ulcerative
  2. VEDOLIZUMAB [Suspect]
     Active Substance: VEDOLIZUMAB
     Dosage: 300 MILLIGRAM, Q4WEEKS
     Dates: start: 20240621
  3. VEDOLIZUMAB [Suspect]
     Active Substance: VEDOLIZUMAB
     Dosage: 300 MILLIGRAM, Q4WEEKS
  4. VEDOLIZUMAB [Suspect]
     Active Substance: VEDOLIZUMAB
     Dosage: 300 MILLIGRAM, Q4WEEKS
  5. MESALAMINE [Concomitant]
     Active Substance: MESALAMINE
  6. HYDROCHLOROTHIAZIDE [Concomitant]
     Active Substance: HYDROCHLOROTHIAZIDE
  7. VALSARTAN [Concomitant]
     Active Substance: VALSARTAN
  8. ESOMEPRAZOLE [Concomitant]
     Active Substance: ESOMEPRAZOLE
  9. CIALIS [Concomitant]
     Active Substance: TADALAFIL
  10. Cortiment [Concomitant]

REACTIONS (3)
  - Pulmonary embolism [Recovering/Resolving]
  - Off label use [Unknown]
  - Chronic obstructive pulmonary disease [Unknown]

NARRATIVE: CASE EVENT DATE: 20240621
